FAERS Safety Report 13568197 (Version 2)
Quarter: 2018Q2

REPORT INFORMATION
  Report Type: Report from Study
  Country: US (occurrence: US)
  Receive Date: 20170522
  Receipt Date: 20180504
  Transmission Date: 20180711
  Serious: Yes (Hospitalization, Other)
  Sender: FDA-Public Use
  Company Number: US-009507513-1705USA008995

PATIENT
  Age: 75 Year
  Sex: Female

DRUGS (2)
  1. PEMBROLIZUMAB. [Suspect]
     Active Substance: PEMBROLIZUMAB
     Indication: METASTASES TO BONE
  2. PEMBROLIZUMAB. [Suspect]
     Active Substance: PEMBROLIZUMAB
     Indication: NON-SMALL CELL LUNG CANCER METASTATIC
     Dosage: UNK, EVERY 3 WEEKS
     Route: 042
     Dates: start: 201610

REACTIONS (6)
  - Cerebellar tumour [Unknown]
  - Rash pruritic [Unknown]
  - Adverse event [Unknown]
  - Diarrhoea [Not Recovered/Not Resolved]
  - Malignant neoplasm progression [Unknown]
  - Constipation [Unknown]

NARRATIVE: CASE EVENT DATE: 20170424
